FAERS Safety Report 23370228 (Version 2)
Quarter: 2024Q1

REPORT INFORMATION
  Report Type: Spontaneous
  Country: CH (occurrence: CH)
  Receive Date: 20240105
  Receipt Date: 20240206
  Transmission Date: 20240410
  Serious: No
  Sender: FDA-Public Use
  Company Number: CH-PFIZER INC-PV202300201907

PATIENT

DRUGS (1)
  1. SOMATROGON [Suspect]
     Active Substance: SOMATROGON
     Dosage: UNK

REACTIONS (2)
  - Injection site pain [Unknown]
  - Condition aggravated [Unknown]
